FAERS Safety Report 4319301-0 (Version None)
Quarter: 2004Q1

REPORT INFORMATION
  Report Type: 
  Country: None (occurrence: None)
  Receive Date: 20040316
  Receipt Date: 20040309
  Transmission Date: 20041129
  Serious: Yes (Other)
  Sender: FDA-Public Use
  Company Number: 2004201712ZA

PATIENT
  Age: 50 Year
  Sex: Female

DRUGS (1)
  1. AROMASIN [Suspect]
     Dosage: 25 MG, QD, ORAL
     Route: 048

REACTIONS (1)
  - DEEP VEIN THROMBOSIS [None]
